FAERS Safety Report 5608068-1 (Version None)
Quarter: 2008Q1

REPORT INFORMATION
  Report Type: 
  Country: None (occurrence: None)
  Receive Date: 20080128
  Receipt Date: 20080128
  Transmission Date: 20080703
  Serious: Yes (Death)
  Sender: FDA-Public Use
  Company Number: None

PATIENT
  Age: 61 Year
  Sex: Male
  Weight: 43.3185 kg

DRUGS (2)
  1. ALIMTA [Suspect]
     Indication: NEOPLASM MALIGNANT
     Dates: start: 20080110
  2. OXALIPLATIN [Suspect]
     Indication: NEOPLASM MALIGNANT
     Dates: start: 20080110

REACTIONS (6)
  - BONE MARROW FAILURE [None]
  - DEHYDRATION [None]
  - DYSPNOEA [None]
  - METABOLIC ACIDOSIS [None]
  - RENAL FAILURE ACUTE [None]
  - SEPSIS [None]
